FAERS Safety Report 21371627 (Version 1)
Quarter: 2022Q3

REPORT INFORMATION
  Report Type: Spontaneous
  Country: CH (occurrence: CH)
  Receive Date: 20220923
  Receipt Date: 20220923
  Transmission Date: 20221026
  Serious: Yes (Life-Threatening, Hospitalization)
  Sender: FDA-Public Use
  Company Number: CH-JNJFOC-20220936531

PATIENT
  Age: 48 Year
  Sex: Female

DRUGS (23)
  1. REMICADE [Suspect]
     Active Substance: INFLIXIMAB
     Indication: Inflammatory bowel disease
     Route: 041
     Dates: start: 201612, end: 20210310
  2. REMICADE [Suspect]
     Active Substance: INFLIXIMAB
     Route: 041
     Dates: start: 20210604, end: 202110
  3. REMICADE [Suspect]
     Active Substance: INFLIXIMAB
     Route: 041
     Dates: start: 20210604, end: 202110
  4. METHOTREXATE [Suspect]
     Active Substance: METHOTREXATE
     Indication: Arthritis
     Route: 058
     Dates: start: 202108, end: 20211124
  5. XARELTO [Concomitant]
     Active Substance: RIVAROXABAN
     Route: 048
  6. FOLIC ACID [Concomitant]
     Active Substance: FOLIC ACID
     Route: 048
  7. THIAMINE HYDROCHLORIDE [Concomitant]
     Active Substance: THIAMINE HYDROCHLORIDE
     Route: 048
  8. CALCIUM\CHOLECALCIFEROL [Concomitant]
     Active Substance: CALCIUM\CHOLECALCIFEROL
     Dosage: 1,000 MG / 800 IU
     Route: 048
  9. MIDAZOLAM HYDROCHLORIDE [Concomitant]
     Active Substance: MIDAZOLAM HYDROCHLORIDE
     Route: 048
  10. DUPHALAC [Concomitant]
     Active Substance: LACTULOSE
     Route: 048
  11. SODIUM PICOSULFATE [Concomitant]
     Active Substance: SODIUM PICOSULFATE
     Route: 048
  12. METHADONE [Concomitant]
     Active Substance: METHADONE HYDROCHLORIDE
     Dosage: 5 MG/1 ML; ML 1.2-0.5-0.5-1.2
     Route: 048
  13. NALOXEGOL OXALATE [Concomitant]
     Active Substance: NALOXEGOL OXALATE
     Route: 048
  14. MAGNESIUM ASPARTATE HYDROCHLORIDE [Concomitant]
     Active Substance: MAGNESIUM ASPARTATE HYDROCHLORIDE
     Route: 048
  15. MOTILIUM [Concomitant]
     Active Substance: DOMPERIDONE
     Route: 048
  16. PANTOPRAZOLE SODIUM [Concomitant]
     Active Substance: PANTOPRAZOLE SODIUM
     Route: 048
  17. PRUCALOPRIDE SUCCINATE [Concomitant]
     Active Substance: PRUCALOPRIDE SUCCINATE
     Route: 048
  18. SURMONTIL [Concomitant]
     Active Substance: TRIMIPRAMINE MALEATE
     Route: 048
  19. CHLORPROTHIXENE [Concomitant]
     Active Substance: CHLORPROTHIXENE
     Route: 048
  20. AGOMELATINE [Concomitant]
     Active Substance: AGOMELATINE
     Route: 048
  21. VALIUM [Concomitant]
     Active Substance: DIAZEPAM
     Route: 048
  22. ALBUTEROL [Concomitant]
     Active Substance: ALBUTEROL
     Dosage: 1.25 MG/2.5 ML
     Route: 055
  23. AGOMELATINE [Concomitant]
     Active Substance: AGOMELATINE
     Route: 048

REACTIONS (4)
  - Febrile bone marrow aplasia [Recovering/Resolving]
  - Mucosal inflammation [Recovering/Resolving]
  - Erythema multiforme [Recovering/Resolving]
  - Pancytopenia [Recovered/Resolved]

NARRATIVE: CASE EVENT DATE: 20211128
